FAERS Safety Report 4429734-X (Version None)
Quarter: 2004Q3

REPORT INFORMATION
  Report Type: 
  Country: None (occurrence: None)
  Receive Date: 20040816
  Receipt Date: 20040804
  Transmission Date: 20050211
  Serious: Yes (Hospitalization)
  Sender: FDA-Public Use
  Company Number: STA-AE-04-MTX-343

PATIENT
  Age: 40 Year
  Sex: Female

DRUGS (2)
  1. METHOTREXATE [Suspect]
     Indication: RHEUMATOID ARTHRITIS
     Dosage: 2.5 MG 1 X PER 1 DAY, ORAL
     Route: 048
     Dates: start: 20020301, end: 20040401
  2. CORTANCYL (PREDNISONE) [Suspect]
     Indication: RHEUMATOID ARTHRITIS
     Dosage: 4 MG, ORAL
     Route: 048
     Dates: start: 20021001, end: 20030201

REACTIONS (2)
  - ASPERGILLOMA [None]
  - DRUG INTOLERANCE [None]
